FAERS Safety Report 13232408 (Version 1)
Quarter: 2017Q1

REPORT INFORMATION
  Report Type: Report from Study
  Country: None (occurrence: US)
  Receive Date: 20170214
  Receipt Date: 20170214
  Transmission Date: 20170428
  Serious: No
  Sender: FDA-Public Use
  Company Number: US-AMAG PHARMACEUTICALS, INC.-AMAG201601042

PATIENT

DRUGS (2)
  1. PRENATAL VITAMINS [Suspect]
     Active Substance: VITAMINS
     Indication: PREGNANCY
     Dosage: UNK, QD
     Dates: start: 201511
  2. MAKENA [Suspect]
     Active Substance: HYDROXYPROGESTERONE CAPROATE
     Indication: PRODUCT USED FOR UNKNOWN INDICATION
     Dosage: 250 MG, UNK
     Route: 030
     Dates: start: 20160303, end: 20160608

REACTIONS (3)
  - Uterine contractions during pregnancy [Recovered/Resolved]
  - Road traffic accident [Recovered/Resolved]
  - Premature labour [Recovered/Resolved]

NARRATIVE: CASE EVENT DATE: 20160606
